FAERS Safety Report 21211911 (Version 1)
Quarter: 2022Q3

REPORT INFORMATION
  Report Type: Spontaneous
  Country: DK (occurrence: None)
  Receive Date: 20220815
  Receipt Date: 20220815
  Transmission Date: 20221027
  Serious: Yes (Death, Hospitalization)
  Sender: FDA-Public Use
  Company Number: 2022A282757

PATIENT
  Age: 57 Year
  Sex: Female
  Weight: 44 kg

DRUGS (2)
  1. FASLODEX [Suspect]
     Active Substance: FULVESTRANT
     Indication: Breast cancer metastatic
     Dosage: STRENGTH: 250 MG/5 ML.
     Route: 030
     Dates: start: 20220714
  2. ABEMACICLIB [Suspect]
     Active Substance: ABEMACICLIB
     Indication: Breast cancer metastatic
     Dosage: STRENGTH: 150 MG
     Route: 048
     Dates: start: 20220714

REACTIONS (4)
  - Hepatic failure [Fatal]
  - Coma hepatic [Fatal]
  - Hepatic enzyme increased [Fatal]
  - Hypotension [Fatal]

NARRATIVE: CASE EVENT DATE: 20220701
